FAERS Safety Report 17018667 (Version 5)
Quarter: 2020Q2

REPORT INFORMATION
  Report Type: Spontaneous
  Country: ES (occurrence: ES)
  Receive Date: 20191111
  Receipt Date: 20200630
  Transmission Date: 20200713
  Serious: Yes (Death, Hospitalization, Other)
  Sender: FDA-Public Use
  Company Number: NVSC2019ES032058

PATIENT
  Age: 30 Year
  Sex: Male

DRUGS (32)
  1. BUDESONIDE. [Suspect]
     Active Substance: BUDESONIDE
     Indication: GRAFT VERSUS HOST DISEASE IN GASTROINTESTINAL TRACT
  2. CEFEPIME [Suspect]
     Active Substance: CEFEPIME HYDROCHLORIDE
     Indication: ASPERGILLUS INFECTION
  3. CEFEPIME [Suspect]
     Active Substance: CEFEPIME HYDROCHLORIDE
     Indication: BRONCHOPULMONARY ASPERGILLOSIS
  4. AMPHOTERICIN B. [Suspect]
     Active Substance: AMPHOTERICIN B
     Indication: ASPERGILLUS INFECTION
  5. ACYCLOVIR. [Suspect]
     Active Substance: ACYCLOVIR
     Indication: RETINITIS VIRAL
     Dosage: UNK
     Route: 042
  6. ACYCLOVIR. [Suspect]
     Active Substance: ACYCLOVIR
     Indication: ANTIVIRAL PROPHYLAXIS
  7. RUXOLITINIB [Suspect]
     Active Substance: RUXOLITINIB
     Indication: GRAFT VERSUS HOST DISEASE IN SKIN
     Dosage: UNK
     Route: 065
     Dates: start: 20170801
  8. AMPHOTERICIN B. [Suspect]
     Active Substance: AMPHOTERICIN B
     Indication: PNEUMONIA
     Dosage: INTRAVITREAL TREATMENT
     Route: 031
  9. INSULIN [Suspect]
     Active Substance: INSULIN NOS
     Indication: PRODUCT USED FOR UNKNOWN INDICATION
     Dosage: UNK
     Route: 065
  10. PREDNISONE. [Suspect]
     Active Substance: PREDNISONE
     Indication: GRAFT VERSUS HOST DISEASE
  11. POSACONAZOLE [Suspect]
     Active Substance: POSACONAZOLE
     Indication: ANTIFUNGAL TREATMENT
     Dosage: 300 MG, QD
     Route: 065
  12. AMPHOTERICIN B. [Suspect]
     Active Substance: AMPHOTERICIN B
     Indication: RETINITIS VIRAL
  13. TACROLIMUS. [Suspect]
     Active Substance: TACROLIMUS
     Indication: GRAFT VERSUS HOST DISEASE IN GASTROINTESTINAL TRACT
  14. BUDESONIDE. [Suspect]
     Active Substance: BUDESONIDE
     Indication: GRAFT VERSUS HOST DISEASE
  15. TACROLIMUS. [Suspect]
     Active Substance: TACROLIMUS
     Indication: CHRONIC GRAFT VERSUS HOST DISEASE IN SKIN
     Dosage: UNK
     Route: 065
     Dates: start: 20170801
  16. VORICONAZOLE. [Suspect]
     Active Substance: VORICONAZOLE
     Indication: ANTIFUNGAL TREATMENT
  17. COTRIMOXAZOL [Suspect]
     Active Substance: SULFAMETHOXAZOLE\TRIMETHOPRIM
     Indication: PRODUCT USED FOR UNKNOWN INDICATION
     Dosage: (TRIMETHOPRIM/SULFAMETHOXAZOLE-400+80 MG, MONDAY, WEDNESDAY, AND FRIDAY)
     Route: 065
  18. OMEPRAZOLE. [Suspect]
     Active Substance: OMEPRAZOLE
     Indication: PRODUCT USED FOR UNKNOWN INDICATION
     Dosage: 20 MG/DAY
     Route: 065
  19. GANCICLOVIR. [Suspect]
     Active Substance: GANCICLOVIR
     Indication: RETINITIS VIRAL
     Dosage: INTRAVITREAL TREATMENT
     Route: 031
  20. FOSCARNET [Suspect]
     Active Substance: FOSCARNET
     Indication: RETINITIS VIRAL
     Dosage: INTRAVITREAL TREATMENT
     Route: 031
  21. BUDESONIDE. [Suspect]
     Active Substance: BUDESONIDE
     Indication: ACUTE GRAFT VERSUS HOST DISEASE IN SKIN
     Dosage: UNK
     Route: 065
     Dates: start: 20170801
  22. PREDNISONE. [Suspect]
     Active Substance: PREDNISONE
     Indication: GRAFT VERSUS HOST DISEASE IN GASTROINTESTINAL TRACT
  23. CIPROFLOXACIN. [Suspect]
     Active Substance: CIPROFLOXACIN
     Indication: BRONCHOPULMONARY ASPERGILLOSIS
     Dosage: UNK
     Route: 065
  24. AMPHOTERICIN B. [Suspect]
     Active Substance: AMPHOTERICIN B
     Indication: ANTIFUNGAL TREATMENT
  25. RUXOLITINIB [Suspect]
     Active Substance: RUXOLITINIB
     Indication: GRAFT VERSUS HOST DISEASE
     Dosage: UNK
     Route: 065
     Dates: start: 20190801
  26. TACROLIMUS. [Suspect]
     Active Substance: TACROLIMUS
     Indication: GRAFT VERSUS HOST DISEASE
  27. PREDNISONE. [Suspect]
     Active Substance: PREDNISONE
     Indication: CHRONIC GRAFT VERSUS HOST DISEASE IN SKIN
     Dosage: UNK
     Route: 065
     Dates: start: 20170801
  28. VORICONAZOLE. [Suspect]
     Active Substance: VORICONAZOLE
     Indication: ASPERGILLUS INFECTION
     Dosage: UNK
     Route: 031
  29. FORTASEC [Suspect]
     Active Substance: LOPERAMIDE HYDROCHLORIDE
     Indication: PRODUCT USED FOR UNKNOWN INDICATION
     Dosage: UNK
     Route: 031
  30. AMPHOTERICIN B. [Suspect]
     Active Substance: AMPHOTERICIN B
     Indication: PSEUDOMONAS INFECTION
  31. CEFEPIME [Suspect]
     Active Substance: CEFEPIME HYDROCHLORIDE
     Indication: PNEUMONIA
     Dosage: UNK
     Route: 065
  32. CEFEPIME [Suspect]
     Active Substance: CEFEPIME HYDROCHLORIDE
     Indication: PSEUDOMONAS INFECTION

REACTIONS (23)
  - Intracranial mass [Fatal]
  - Cerebral haematoma [Fatal]
  - Retinitis viral [Unknown]
  - Product use in unapproved indication [Unknown]
  - Retinal haemorrhage [Fatal]
  - Eye infection fungal [Fatal]
  - Cerebral haemorrhage [Fatal]
  - Off label use [Unknown]
  - Condition aggravated [Fatal]
  - Cerebral aspergillosis [Fatal]
  - Central nervous system lesion [Fatal]
  - Retinal ischaemia [Fatal]
  - Septic embolus [Fatal]
  - Brain herniation [Fatal]
  - Product use issue [Fatal]
  - Cerebral artery embolism [Fatal]
  - Drug ineffective [Fatal]
  - Visual field defect [Unknown]
  - Embolism [Unknown]
  - Aspergillus infection [Fatal]
  - Necrotising retinitis [Fatal]
  - Pseudomonas infection [Unknown]
  - Pneumonia [Unknown]
